FAERS Safety Report 4856341-7 (Version None)
Quarter: 2005Q4

REPORT INFORMATION
  Report Type: 
  Country: None (occurrence: None)
  Receive Date: 20051219
  Receipt Date: 20050208
  Transmission Date: 20060501
  Serious: No
  Sender: FDA-Public Use
  Company Number: US-GLAXOSMITHKLINE-A0544495A

PATIENT
  Sex: Male
  Weight: 63 kg

DRUGS (1)
  1. NICODERM CQ [Suspect]
     Indication: DRUG USE FOR UNKNOWN INDICATION
     Dates: start: 20050206, end: 20050206

REACTIONS (2)
  - FEELING JITTERY [None]
  - NAUSEA [None]
